FAERS Safety Report 22181638 (Version 2)
Quarter: 2023Q2

REPORT INFORMATION
  Report Type: Spontaneous
  Country: PT (occurrence: PT)
  Receive Date: 20230406
  Receipt Date: 20230612
  Transmission Date: 20230722
  Serious: Yes (Death, Other)
  Sender: FDA-Public Use
  Company Number: PT-SA-SAC20230406000482

PATIENT
  Age: 79 Year
  Sex: Male

DRUGS (17)
  1. CABLIVI [Suspect]
     Active Substance: CAPLACIZUMAB-YHDP
     Indication: Thrombotic thrombocytopenic purpura
     Dosage: 10 MG, 1X
     Route: 042
     Dates: start: 20230328, end: 20230328
  2. CABLIVI [Suspect]
     Active Substance: CAPLACIZUMAB-YHDP
     Indication: Thrombotic thrombocytopenic purpura
     Dosage: 10 MG, 1X
     Route: 042
     Dates: start: 20230328, end: 20230328
  3. CABLIVI [Suspect]
     Active Substance: CAPLACIZUMAB-YHDP
     Indication: Thrombotic thrombocytopenic purpura
     Dosage: 10 MG, 1X
     Route: 042
     Dates: start: 20230328, end: 20230328
  4. CABLIVI [Suspect]
     Active Substance: CAPLACIZUMAB-YHDP
     Indication: Thrombotic thrombocytopenic purpura
     Dosage: 10 MG, 1X
     Route: 042
     Dates: start: 20230328, end: 20230328
  5. CABLIVI [Suspect]
     Active Substance: CAPLACIZUMAB-YHDP
     Dosage: 10 MG, QD
     Route: 058
     Dates: start: 20230328, end: 20230329
  6. CABLIVI [Suspect]
     Active Substance: CAPLACIZUMAB-YHDP
     Dosage: 10 MG, QD
     Route: 058
     Dates: start: 20230328, end: 20230329
  7. CABLIVI [Suspect]
     Active Substance: CAPLACIZUMAB-YHDP
     Dosage: 10 MG, QD
     Route: 058
     Dates: start: 20230328, end: 20230329
  8. CABLIVI [Suspect]
     Active Substance: CAPLACIZUMAB-YHDP
     Dosage: 10 MG, QD
     Route: 058
     Dates: start: 20230328, end: 20230329
  9. INSULIN NOS [Concomitant]
     Active Substance: INSULIN NOS
  10. METHYLPREDNISOLONE [Concomitant]
     Active Substance: METHYLPREDNISOLONE
  11. NOREPINEPHRINE [Concomitant]
     Active Substance: NOREPINEPHRINE
  12. LEVETIRACETAM [Concomitant]
     Active Substance: LEVETIRACETAM
  13. QUETIAPINE [Concomitant]
     Active Substance: QUETIAPINE
  14. FUROSEMIDE [Concomitant]
     Active Substance: FUROSEMIDE
  15. ALBUTEROL [Concomitant]
     Active Substance: ALBUTEROL
  16. IPRATROPIUM [Concomitant]
     Active Substance: IPRATROPIUM
  17. ACETAMINOPHEN [Concomitant]
     Active Substance: ACETAMINOPHEN

REACTIONS (1)
  - Cardiac arrest [Fatal]

NARRATIVE: CASE EVENT DATE: 20230330
